FAERS Safety Report 14728652 (Version 2)
Quarter: 2018Q2

REPORT INFORMATION
  Report Type: Spontaneous
  Country: US (occurrence: US)
  Receive Date: 20180406
  Receipt Date: 20180409
  Transmission Date: 20180711
  Serious: Yes (Other)
  Sender: FDA-Public Use
  Company Number: US-009507513-1804USA000280

PATIENT
  Age: 18 Year
  Sex: Female

DRUGS (1)
  1. NEXPLANON [Suspect]
     Active Substance: ETONOGESTREL
     Indication: CONTRACEPTION
     Dosage: 6 MICROGRAM, QD (1 IMPLANT, EVERY THREE YEARS)
     Route: 059
     Dates: start: 20170104, end: 20170330

REACTIONS (4)
  - Unintended pregnancy [Recovered/Resolved]
  - Vaginal discharge [Unknown]
  - Vaginal haemorrhage [Unknown]
  - Pregnancy with implant contraceptive [Recovered/Resolved]

NARRATIVE: CASE EVENT DATE: 201703
